FAERS Safety Report 23338888 (Version 1)
Quarter: 2023Q4

REPORT INFORMATION
  Report Type: Spontaneous
  Country: US (occurrence: US)
  Receive Date: 20231226
  Receipt Date: 20231226
  Transmission Date: 20240110
  Serious: No
  Sender: FDA-Public Use
  Company Number: US-GILEAD-2023-0655698

PATIENT
  Age: 58 Year
  Sex: Male

DRUGS (1)
  1. BIKTARVY [Suspect]
     Active Substance: BICTEGRAVIR SODIUM\EMTRICITABINE\TENOFOVIR ALAFENAMIDE FUMARATE
     Indication: HIV infection
     Dosage: UNK (STARTED 3 YEARS AGO, BOTTLE 2:3 (19 DOSES LEFT))
     Route: 065

REACTIONS (4)
  - CD4 lymphocytes decreased [Unknown]
  - Product quality issue [Unknown]
  - Drug ineffective [Unknown]
  - Suspected counterfeit product [Unknown]
